FAERS Safety Report 24406678 (Version 4)
Quarter: 2025Q1

REPORT INFORMATION
  Report Type: Report from Study
  Country: US (occurrence: US)
  Receive Date: 20241007
  Receipt Date: 20250312
  Transmission Date: 20250409
  Serious: No
  Sender: AMGEN
  Company Number: US-AMGEN-USASP2024197735

PATIENT
  Age: 67 Year
  Sex: Female

DRUGS (2)
  1. TEPEZZA [Suspect]
     Active Substance: TEPROTUMUMAB-TRBW
     Indication: Endocrine ophthalmopathy
     Dosage: 1 DOSAGE FORM, Q3WK (1X EVERY 3 WEEKS FOR 8 INFUSIONS)
     Route: 042
     Dates: start: 20240710
  2. TEPEZZA [Suspect]
     Active Substance: TEPROTUMUMAB-TRBW
     Indication: Toxic goitre

REACTIONS (3)
  - Hypoacusis [Not Recovered/Not Resolved]
  - Taste disorder [Unknown]
  - Dysgeusia [Unknown]
